FAERS Safety Report 9866771 (Version 1)
Quarter: 2014Q1

REPORT INFORMATION
  Report Type: Spontaneous
  Country: GB (occurrence: GB)
  Receive Date: 20140204
  Receipt Date: 20140204
  Transmission Date: 20141002
  Serious: Yes (Hospitalization, Other)
  Sender: FDA-Public Use
  Company Number: GB-ACCORD-021642

PATIENT
  Age: 27 Month
  Sex: Male

DRUGS (5)
  1. ETOPOSIDE [Suspect]
     Indication: NEUROBLASTOMA
  2. CYCLOPHOSPHAMIDE/CYCLOPHOSPHAMIDE MONOHYDRATE [Suspect]
     Indication: NEUROBLASTOMA
  3. CARBOPLATIN [Suspect]
     Indication: NEUROBLASTOMA
  4. CISPLATIN [Suspect]
     Indication: NEUROBLASTOMA
  5. VINCRISTINE [Suspect]
     Indication: NEUROBLASTOMA

REACTIONS (3)
  - Pancytopenia [Recovering/Resolving]
  - Off label use [Unknown]
  - Haemolytic uraemic syndrome [Unknown]
